FAERS Safety Report 18501773 (Version 1)
Quarter: 2020Q4

REPORT INFORMATION
  Report Type: Spontaneous
  Country: US (occurrence: US)
  Receive Date: 20201113
  Receipt Date: 20201113
  Transmission Date: 20210114
  Serious: Yes (Other)
  Sender: FDA-Public Use
  Company Number: US-LANNETT COMPANY, INC.-US-2020LAN000293

PATIENT
  Sex: Female

DRUGS (2)
  1. PRIMIDONE. [Suspect]
     Active Substance: PRIMIDONE
     Indication: EPILEPSY
     Dosage: 250 MG, TID
     Route: 048
     Dates: start: 2020
  2. CARBAMAZEPINE. [Concomitant]
     Active Substance: CARBAMAZEPINE
     Indication: PRODUCT USED FOR UNKNOWN INDICATION
     Dosage: 200 MG, 3 TABS AM; 3 TABS AFTERNOON, 2 TABS BEFORE BEDTIME
     Route: 065

REACTIONS (5)
  - Product substitution issue [Unknown]
  - Diarrhoea [Unknown]
  - Loss of personal independence in daily activities [Unknown]
  - Paraesthesia [Unknown]
  - Substance dependence [Unknown]

NARRATIVE: CASE EVENT DATE: 2020
